FAERS Safety Report 20199461 (Version 2)
Quarter: 2022Q1

REPORT INFORMATION
  Report Type: Spontaneous
  Country: JP (occurrence: JP)
  Receive Date: 20211217
  Receipt Date: 20220103
  Transmission Date: 20220423
  Serious: No
  Sender: FDA-Public Use
  Company Number: JP-SYMBIO-202100498

PATIENT
  Age: 72 Year
  Sex: Female

DRUGS (6)
  1. BENDAMUSTINE HYDROCHLORIDE [Suspect]
     Active Substance: BENDAMUSTINE HYDROCHLORIDE
     Indication: Diffuse large B-cell lymphoma recurrent
     Dosage: (ONCE DAILY)
     Route: 041
  2. BENDAMUSTINE HYDROCHLORIDE [Suspect]
     Active Substance: BENDAMUSTINE HYDROCHLORIDE
     Indication: Diffuse large B-cell lymphoma refractory
  3. RITUXAN [Suspect]
     Active Substance: RITUXIMAB
     Indication: Diffuse large B-cell lymphoma recurrent
     Route: 041
  4. RITUXAN [Suspect]
     Active Substance: RITUXIMAB
     Indication: Diffuse large B-cell lymphoma refractory
  5. POLIVY [Suspect]
     Active Substance: POLATUZUMAB VEDOTIN-PIIQ
     Indication: Diffuse large B-cell lymphoma recurrent
     Route: 041
  6. POLIVY [Suspect]
     Active Substance: POLATUZUMAB VEDOTIN-PIIQ
     Indication: Diffuse large B-cell lymphoma refractory

REACTIONS (2)
  - Therapy partial responder [Unknown]
  - Off label use [Unknown]
